FAERS Safety Report 6593576-X (Version None)
Quarter: 2010Q1

REPORT INFORMATION
  Report Type: 
  Country: None (occurrence: None)
  Receive Date: 20100222
  Receipt Date: 20090819
  Transmission Date: 20100710
  Serious: Yes (Other)
  Sender: FDA-Public Use
  Company Number: US-BRISTOL-MYERS SQUIBB COMPANY-14733752

PATIENT
  Age: 76 Year
  Sex: Male

DRUGS (12)
  1. ORENCIA [Suspect]
     Indication: RHEUMATOID ARTHRITIS
     Dosage: 8S41494
     Route: 042
     Dates: start: 20070807
  2. MOBIC [Concomitant]
  3. VICODIN [Concomitant]
  4. METFORMIN HCL [Concomitant]
  5. FELODIPINE [Concomitant]
  6. COZAAR [Concomitant]
  7. ZETIA [Concomitant]
  8. SOMA [Concomitant]
  9. OMEPRAZOLE [Concomitant]
  10. TOPROL-XL [Concomitant]
  11. DOXAZOSIN MESYLATE [Concomitant]
  12. PLAVIX [Concomitant]

REACTIONS (1)
  - LYMPHOMA [None]
